FAERS Safety Report 8395848-5 (Version None)
Quarter: 2012Q2

REPORT INFORMATION
  Report Type: 
  Country: None (occurrence: None)
  Receive Date: 20120530
  Receipt Date: 20120525
  Transmission Date: 20120825
  Serious: Yes (Hospitalization)
  Sender: FDA-Public Use
  Company Number: FR-ROCHE-1065203

PATIENT
  Sex: Male

DRUGS (5)
  1. VALIUM [Suspect]
     Indication: ALCOHOL DETOXIFICATION
     Route: 048
     Dates: start: 20120225
  2. LOVENOX [Suspect]
     Indication: PROPHYLAXIS
     Route: 058
     Dates: start: 20120225, end: 20120228
  3. PRIMPERAN ELIXIR [Suspect]
     Indication: NAUSEA
     Route: 048
     Dates: start: 20120225
  4. VITAMIN B6 [Suspect]
     Indication: ALCOHOL DETOXIFICATION
     Route: 048
     Dates: start: 20120225
  5. VITAMIN B1 TAB [Suspect]
     Indication: ALCOHOL DETOXIFICATION
     Route: 048
     Dates: start: 20120225

REACTIONS (1)
  - CYTOLYTIC HEPATITIS [None]
